FAERS Safety Report 4996751-0 (Version None)
Quarter: 2006Q2

REPORT INFORMATION
  Report Type: 
  Country: None (occurrence: None)
  Receive Date: 20060509
  Receipt Date: 20060428
  Transmission Date: 20061013
  Serious: Yes (Death, Disabling)
  Sender: FDA-Public Use
  Company Number: US-MERCK-0605USA00297

PATIENT
  Sex: Male

DRUGS (1)
  1. VIOXX [Suspect]
     Indication: CHEST PAIN
     Route: 048
     Dates: start: 20040419

REACTIONS (3)
  - ANXIETY [None]
  - CARDIAC DISORDER [None]
  - INJURY [None]
